FAERS Safety Report 10773877 (Version 1)
Quarter: 2015Q1

REPORT INFORMATION
  Report Type: Spontaneous
  Country: US (occurrence: US)
  Receive Date: 20150208
  Receipt Date: 20150208
  Transmission Date: 20150721
  Serious: No
  Sender: FDA-Public Use
  Company Number: US-ACORDA-ACO_107736_2014

PATIENT
  Sex: Female

DRUGS (1)
  1. AMPYRA [Suspect]
     Active Substance: DALFAMPRIDINE
     Indication: PRODUCT USED FOR UNKNOWN INDICATION
     Dosage: 10 MG, BID
     Route: 048
     Dates: start: 20141102, end: 20141115

REACTIONS (19)
  - Tremor [Not Recovered/Not Resolved]
  - Muscle twitching [Unknown]
  - Feeling abnormal [Unknown]
  - Head titubation [Unknown]
  - Activities of daily living impaired [Unknown]
  - Back pain [None]
  - Urinary tract infection [Unknown]
  - Vision blurred [Unknown]
  - Gait disturbance [Not Recovered/Not Resolved]
  - Coordination abnormal [Unknown]
  - Hallucination [Unknown]
  - Peripheral coldness [Unknown]
  - Insomnia [Unknown]
  - Hypoaesthesia [Unknown]
  - Malaise [Unknown]
  - Pain in extremity [Not Recovered/Not Resolved]
  - Visual impairment [Unknown]
  - Urinary tract infection [Recovered/Resolved]
  - Asthenia [Unknown]

NARRATIVE: CASE EVENT DATE: 20141104
